FAERS Safety Report 7892606-2 (Version None)
Quarter: 2011Q4

REPORT INFORMATION
  Report Type: 
  Country: None (occurrence: None)
  Receive Date: 20111026
  Receipt Date: 20111020
  Transmission Date: 20120403
  Serious: Yes (Other)
  Sender: FDA-Public Use
  Company Number: 2011028755

PATIENT
  Age: 56 Year
  Sex: Female
  Weight: 72.5755 kg

DRUGS (14)
  1. PRO AIR (PROCATEROL HYDROCHLORIDE) [Concomitant]
  2. ACTIVELLA (OESTRANORM) [Concomitant]
  3. ZEMAIRA [Suspect]
  4. ZEMAIRA [Suspect]
  5. LISINOPRIL [Concomitant]
  6. MUCINEX [Concomitant]
  7. PRINIVIL [Concomitant]
  8. ZEMAIRA [Suspect]
     Indication: ALPHA-1 ANTI-TRYPSIN DEFICIENCY
     Dosage: SEE IMAGE
     Route: 042
     Dates: start: 20111013
  9. ZEMAIRA [Suspect]
     Indication: ALPHA-1 ANTI-TRYPSIN DEFICIENCY
     Dosage: SEE IMAGE
     Route: 042
     Dates: start: 20090801
  10. ESTRACE [Concomitant]
  11. SINGULAIR [Concomitant]
  12. ADVAIR DISKUS 100/50 [Concomitant]
  13. LEXAPRO [Concomitant]
  14. SPIRIVA [Concomitant]

REACTIONS (4)
  - RESPIRATORY TRACT CONGESTION [None]
  - SINUSITIS [None]
  - LOWER RESPIRATORY TRACT INFECTION [None]
  - UPPER RESPIRATORY TRACT INFECTION [None]
